FAERS Safety Report 8911633 (Version 1)
Quarter: 2012Q4

REPORT INFORMATION
  Report Type: Spontaneous
  Country: US (occurrence: None)
  Receive Date: 20121114
  Receipt Date: 20121114
  Transmission Date: 20130627
  Serious: Yes (Other)
  Sender: FDA-Public Use
  Company Number: None

PATIENT
  Age: 46 Year
  Sex: Female
  Weight: 78.93 kg

DRUGS (2)
  1. QUETIAPINE FUMARATE [Suspect]
     Indication: BIPOLAR DISORDER
  2. QUETIAPINE FUMARATE [Suspect]
     Indication: ANXIETY

REACTIONS (3)
  - Anxiety [None]
  - Product substitution issue [None]
  - Insomnia [None]
